FAERS Safety Report 5619418-4 (Version None)
Quarter: 2008Q1

REPORT INFORMATION
  Report Type: 
  Country: None (occurrence: None)
  Receive Date: 20080114
  Receipt Date: 20070625
  Transmission Date: 20080703
  Serious: Yes (Other)
  Sender: FDA-Public Use
  Company Number: PHEH2007US09197

PATIENT
  Age: 7 Year
  Sex: Female
  Weight: 22.1 kg

DRUGS (4)
  1. FOCALIN [Suspect]
     Indication: ATTENTION DEFICIT/HYPERACTIVITY DISORDER
     Dosage: 15 MG, QD
     Dates: end: 20070321
  2. DAYTRANA [Suspect]
     Dosage: 15 MG, TRANSDERMAL ; 30 MG ; 15 MG
     Route: 062
     Dates: start: 20070301, end: 20070301
  3. DAYTRANA [Suspect]
     Dosage: 15 MG, TRANSDERMAL ; 30 MG ; 15 MG
     Route: 062
     Dates: start: 20070401, end: 20070426
  4. DAYTRANA [Suspect]
     Dosage: 15 MG, TRANSDERMAL ; 30 MG ; 15 MG
     Route: 062
     Dates: start: 20070427, end: 20070503

REACTIONS (5)
  - ANGER [None]
  - ANOREXIA [None]
  - HALLUCINATION [None]
  - PARANOIA [None]
  - WEIGHT DECREASED [None]
